FAERS Safety Report 15130500 (Version 2)
Quarter: 2018Q3

REPORT INFORMATION
  Report Type: Spontaneous
  Country: IT (occurrence: IT)
  Receive Date: 20180711
  Receipt Date: 20180913
  Transmission Date: 20181010
  Serious: Yes (Death, Other)
  Sender: FDA-Public Use
  Company Number: IT-BAYER-2018-125701

PATIENT
  Age: 55 Year
  Sex: Male

DRUGS (4)
  1. REGORAFENIB. [Suspect]
     Active Substance: REGORAFENIB
     Indication: COLON CANCER METASTATIC
     Dosage: DAILY DOSE 120 MG 21 DAYS ON, 7 DAYS OFF
     Route: 048
  2. REGORAFENIB. [Suspect]
     Active Substance: REGORAFENIB
     Indication: COLON CANCER METASTATIC
     Dosage: DAILY DOSE 160 MG 21 DAYS ON, 7 DAYS OFF
     Route: 048
     Dates: start: 201403, end: 201403
  3. REGORAFENIB. [Suspect]
     Active Substance: REGORAFENIB
     Indication: COLON CANCER METASTATIC
     Dosage: DAILY DOSE 160 MG 21 DAYS ON, 7 DAYS OFF
     Route: 048
     Dates: start: 20140331, end: 20140428
  4. REGORAFENIB. [Suspect]
     Active Substance: REGORAFENIB
     Indication: COLON CANCER METASTATIC
     Dosage: DAILY DOSE 160 MG 21 DAYS ON, 7 DAYS OFF
     Route: 048
     Dates: end: 201507

REACTIONS (6)
  - Hyperbilirubinaemia [Recovered/Resolved]
  - Metastases to lung [None]
  - Dyspnoea [None]
  - Palmar-plantar erythrodysaesthesia syndrome [Recovered/Resolved]
  - Diarrhoea [None]
  - Rash [Recovered/Resolved]

NARRATIVE: CASE EVENT DATE: 20140410
